FAERS Safety Report 7865467-5 (Version None)
Quarter: 2011Q4

REPORT INFORMATION
  Report Type: 
  Country: None (occurrence: None)
  Receive Date: 20111028
  Receipt Date: 20110103
  Transmission Date: 20120403
  Serious: No
  Sender: FDA-Public Use
  Company Number: US-GLAXOSMITHKLINE-A0902523A

PATIENT
  Age: 78 Year
  Sex: Female

DRUGS (5)
  1. ALENDRONATE SODIUM [Concomitant]
  2. ROPINIROLE [Concomitant]
  3. GALANTAMINE HYDROBROMIDE [Concomitant]
  4. BENADRYL [Concomitant]
  5. ADVAIR DISKUS 100/50 [Suspect]
     Indication: PRODUCT USED FOR UNKNOWN INDICATION
     Dosage: 1PUFF SINGLE DOSE
     Route: 055
     Dates: start: 20101223, end: 20101223

REACTIONS (5)
  - URTICARIA [None]
  - DYSPNOEA [None]
  - CONVERSION DISORDER [None]
  - PRURITUS [None]
  - CRYING [None]
